FAERS Safety Report 6628334-0 (Version None)
Quarter: 2010Q1

REPORT INFORMATION
  Report Type: 
  Country: None (occurrence: None)
  Receive Date: 20100311
  Receipt Date: 20100226
  Transmission Date: 20100710
  Serious: Yes (Other)
  Sender: FDA-Public Use
  Company Number: US-PFIZER INC-2009226082

PATIENT
  Sex: Female

DRUGS (3)
  1. XALATAN [Suspect]
     Dosage: ONE DROP IN EACH EYE
     Route: 061
     Dates: start: 20081201, end: 20090215
  2. BRIMONIDINE [Suspect]
     Dosage: UNK %, UNK
  3. TIMOLOL MALEATE [Suspect]

REACTIONS (2)
  - HYPERSENSITIVITY [None]
  - INTRAOCULAR PRESSURE TEST ABNORMAL [None]
